FAERS Safety Report 5161378-7 (Version None)
Quarter: 2006Q4

REPORT INFORMATION
  Report Type: 
  Country: None (occurrence: None)
  Receive Date: 20061130
  Receipt Date: 20061116
  Transmission Date: 20070319
  Serious: Yes (Other)
  Sender: FDA-Public Use
  Company Number: TH-ROCHE-471709

PATIENT
  Age: 29 Year
  Sex: Female

DRUGS (3)
  1. ROACCUTANE [Suspect]
     Indication: OILY SKIN
     Dosage: TAKEN 10 MG X 2 CAPSULES PER PRN.
     Route: 048
     Dates: start: 20060812, end: 20061015
  2. ROACCUTANE [Suspect]
     Dosage: THE PATIENT TOOK ISOTRETINOIN SOME TIME DURING EARLY 2006. 10 MG X 10 CAPSULES.
     Route: 048
     Dates: start: 20060615
  3. ROACCUTANE [Suspect]
     Dosage: THE PATIENT TOOK THE PILLS OCCASIONALLY SINCE SHE WAS 21-22 YEARS OLD.
     Route: 048
     Dates: start: 19980615

REACTIONS (4)
  - ABORTION INDUCED [None]
  - DRUG EXPOSURE DURING PREGNANCY [None]
  - NO ADVERSE EFFECT [None]
  - PREGNANCY [None]
